FAERS Safety Report 4530121-4 (Version None)
Quarter: 2004Q4

REPORT INFORMATION
  Report Type: 
  Country: None (occurrence: None)
  Receive Date: 20041217
  Receipt Date: 20041208
  Transmission Date: 20050328
  Serious: Yes (Hospitalization)
  Sender: FDA-Public Use
  Company Number: FR-JNJFOC-20041202133

PATIENT
  Age: 84 Year
  Sex: Female

DRUGS (9)
  1. REMINYL [Suspect]
     Route: 049
  2. MOPRAL [Concomitant]
     Route: 065
  3. LIPANOR [Concomitant]
     Route: 065
  4. ICAZ [Concomitant]
     Route: 065
  5. NISISCO [Concomitant]
     Route: 065
  6. NISISCO [Concomitant]
     Route: 065
  7. DIGOXIN [Concomitant]
     Route: 065
  8. SINTROM [Concomitant]
     Route: 065
  9. CORVASAL [Concomitant]
     Route: 065

REACTIONS (1)
  - TOXIC SKIN ERUPTION [None]
